FAERS Safety Report 8357811-X (Version None)
Quarter: 2012Q2

REPORT INFORMATION
  Report Type: 
  Country: None (occurrence: None)
  Receive Date: 20120514
  Receipt Date: 20110510
  Transmission Date: 20120825
  Serious: Yes (Other)
  Sender: FDA-Public Use
  Company Number: CA-ALEXION-A201100445

PATIENT
  Sex: Female

DRUGS (7)
  1. LASOPRAZOLE [Concomitant]
  2. GRAVOL TAB [Concomitant]
     Dosage: UNK, PRN
  3. SOLIRIS [Suspect]
     Indication: PAROXYSMAL NOCTURNAL HAEMOGLOBINURIA
     Dosage: 900 MG, Q2W
     Route: 042
     Dates: start: 20100426
  4. COUMADIN [Concomitant]
     Indication: PAROXYSMAL NOCTURNAL HAEMOGLOBINURIA
     Dosage: 7 MG, QD
     Route: 048
  5. HYDROMORPH [Concomitant]
     Indication: PAIN
     Dosage: 12 MG, PRN
  6. COLACE [Concomitant]
     Dosage: UNK, PRN
  7. PREDNISONE [Suspect]
     Indication: PAROXYSMAL NOCTURNAL HAEMOGLOBINURIA
     Dosage: 7 MG, QD
     Route: 048

REACTIONS (1)
  - HIP ARTHROPLASTY [None]
